FAERS Safety Report 7030819-2 (Version None)
Quarter: 2010Q4

REPORT INFORMATION
  Report Type: 
  Country: None (occurrence: None)
  Receive Date: 20101006
  Receipt Date: 20100930
  Transmission Date: 20110411
  Serious: No
  Sender: FDA-Public Use
  Company Number: US-PFIZER INC-2010125057

PATIENT
  Sex: Male
  Weight: 19.955 kg

DRUGS (1)
  1. ZITHROMAX [Suspect]
     Indication: SINUSITIS
     Dosage: 200 MG, 1X/DAY
     Route: 048
     Dates: start: 20100929

REACTIONS (1)
  - URTICARIA [None]
